FAERS Safety Report 8263927-9 (Version None)
Quarter: 2012Q2

REPORT INFORMATION
  Report Type: 
  Country: None (occurrence: None)
  Receive Date: 20120406
  Receipt Date: 20120402
  Transmission Date: 20120825
  Serious: Yes (Hospitalization)
  Sender: FDA-Public Use
  Company Number: IT-AMGEN-ITASP2012020704

PATIENT
  Age: 48 Year
  Sex: Male

DRUGS (6)
  1. DELORAZEPAM [Concomitant]
  2. NOZINAN                            /00038601/ [Concomitant]
     Dosage: 25 MG, UNK
  3. VALDORM                            /00246102/ [Concomitant]
     Dosage: 30 MG, UNK
  4. RISPERDAL [Concomitant]
     Dosage: 3 MG, UNK
  5. NPLATE [Suspect]
     Indication: IDIOPATHIC THROMBOCYTOPENIC PURPURA
     Dosage: 1 MUG/KG, QWK
     Route: 058
     Dates: start: 20110101, end: 20120207
  6. ABILIFY [Concomitant]
     Dosage: 10 MG, UNK
     Route: 048

REACTIONS (1)
  - PULMONARY EMBOLISM [None]
